FAERS Safety Report 15762719 (Version 2)
Quarter: 2019Q1

REPORT INFORMATION
  Report Type: Spontaneous
  Country: BG (occurrence: BG)
  Receive Date: 20181226
  Receipt Date: 20190131
  Transmission Date: 20190417
  Serious: Yes (Hospitalization, Other)
  Sender: FDA-Public Use
  Company Number: BG-MYLANLABS-2018M1095781

PATIENT
  Age: 50 Year
  Sex: Male

DRUGS (7)
  1. VIEKIRAX [Interacting]
     Active Substance: OMBITASVIR\PARITAPREVIR\RITONAVIR
     Indication: PRODUCT USED FOR UNKNOWN INDICATION
     Dosage: UNK
  2. CELLCEPT [Concomitant]
     Active Substance: MYCOPHENOLATE MOFETIL\MYCOPHENOLATE MOFETIL HYDROCHLORIDE
     Indication: LIVER TRANSPLANT
     Dosage: 1500 MILLIGRAM, QD
     Route: 065
  3. TACROLIMUS. [Suspect]
     Active Substance: TACROLIMUS
     Indication: LIVER TRANSPLANT
     Dosage: 2 MG, TWICE DAILY (4 MG/DAY)
     Route: 065
  4. TACROLIMUS. [Interacting]
     Active Substance: TACROLIMUS
     Dosage: 0.5 MG, UNKNOWN FREQ.
     Route: 065
  5. INSULIN [Concomitant]
     Active Substance: INSULIN NOS
     Indication: TYPE 2 DIABETES MELLITUS
     Dosage: UNK UNK, UNKNOWN FREQ.
     Route: 065
     Dates: start: 2011
  6. TACROLIMUS. [Interacting]
     Active Substance: TACROLIMUS
     Dosage: 6 UNK
     Route: 065
  7. EXVIERA                            /08341301/ [Interacting]
     Active Substance: DASABUVIR
     Dosage: UNK

REACTIONS (11)
  - Proteinuria [Recovering/Resolving]
  - Immunosuppressant drug level increased [Recovering/Resolving]
  - Blood creatinine increased [Recovering/Resolving]
  - Chronic kidney disease [Recovering/Resolving]
  - Toxicity to various agents [Recovering/Resolving]
  - Slow speech [Recovering/Resolving]
  - Hepatitis C [Recovered/Resolved]
  - Drug interaction [Unknown]
  - Pancytopenia [Recovering/Resolving]
  - Acute kidney injury [Recovering/Resolving]
  - Tremor [Recovering/Resolving]
